FAERS Safety Report 7014884-4 (Version None)
Quarter: 2010Q3

REPORT INFORMATION
  Report Type: 
  Country: None (occurrence: None)
  Receive Date: 20100927
  Receipt Date: 20100726
  Transmission Date: 20110219
  Serious: No
  Sender: FDA-Public Use
  Company Number: US-ASTRAZENECA-2010SE34782

PATIENT
  Sex: Female

DRUGS (1)
  1. ARIMIDEX [Suspect]
     Route: 048
     Dates: start: 20040101, end: 20070101

REACTIONS (5)
  - INSOMNIA [None]
  - PARAESTHESIA [None]
  - PERIPHERAL COLDNESS [None]
  - TINNITUS [None]
  - VEIN DISORDER [None]
